FAERS Safety Report 6441889-4 (Version None)
Quarter: 2009Q4

REPORT INFORMATION
  Report Type: 
  Country: None (occurrence: None)
  Receive Date: 20091116
  Receipt Date: 20091111
  Transmission Date: 20100525
  Serious: Yes (Other)
  Sender: FDA-Public Use
  Company Number: CHPA2009US21965

PATIENT
  Age: 67 Year
  Sex: Male

DRUGS (2)
  1. PRIVATE LABEL (NCH) [Suspect]
     Indication: SMOKING CESSATION THERAPY
     Dosage: 21 MG, QD
     Route: 062
     Dates: start: 20091001, end: 20091028
  2. PRIVATE LABEL (NCH) [Suspect]
     Dosage: UNK, QD
     Route: 062
     Dates: start: 20090101, end: 20090101

REACTIONS (3)
  - DEPRESSED MOOD [None]
  - FOOT OPERATION [None]
  - NERVOUSNESS [None]
